FAERS Safety Report 7610821-X (Version None)
Quarter: 2011Q3

REPORT INFORMATION
  Report Type: 
  Country: None (occurrence: None)
  Receive Date: 20110715
  Receipt Date: 20110705
  Transmission Date: 20111222
  Serious: Yes (Life-Threatening, Hospitalization)
  Sender: FDA-Public Use
  Company Number: RU-US-EMD SERONO, INC.-310001M10RUS

PATIENT
  Age: 28 Year
  Sex: Female

DRUGS (2)
  1. GONAL-F [Suspect]
     Route: 058
     Dates: start: 20100101, end: 20100119
  2. GONAL-F [Suspect]
     Indication: OVULATION INDUCTION
     Route: 058
     Dates: start: 20100101, end: 20100101

REACTIONS (2)
  - RENAL FAILURE ACUTE [None]
  - OVARIAN HYPERSTIMULATION SYNDROME [None]
